FAERS Safety Report 14978040 (Version 1)
Quarter: 2018Q2

REPORT INFORMATION
  Report Type: Spontaneous
  Country: US (occurrence: US)
  Receive Date: 20180515
  Receipt Date: 20180515
  Transmission Date: 20180711
  Serious: Yes (Hospitalization)
  Sender: FDA-Public Use
  Company Number: None

PATIENT
  Age: 33 Year
  Sex: Male
  Weight: 121.5 kg

DRUGS (1)
  1. AZACITIDINE. [Suspect]
     Active Substance: AZACITIDINE
     Indication: ACUTE MYELOID LEUKAEMIA
     Dosage: ?          OTHER FREQUENCY:DAYS 1-7 Q28 DAYS;?
     Route: 042
     Dates: start: 20180510, end: 20180511

REACTIONS (6)
  - Pleuritic pain [None]
  - Pericarditis [None]
  - Headache [None]
  - Chest pain [None]
  - Neck pain [None]
  - Pyrexia [None]

NARRATIVE: CASE EVENT DATE: 20180512
